FAERS Safety Report 9617598 (Version 2)
Quarter: 2013Q4

REPORT INFORMATION
  Report Type: Spontaneous
  Country: US (occurrence: US)
  Receive Date: 20131011
  Receipt Date: 20131011
  Transmission Date: 20140711
  Serious: No
  Sender: FDA-Public Use
  Company Number: US-PFIZER INC-2013262895

PATIENT
  Age: 69 Year
  Sex: Female

DRUGS (4)
  1. XELJANZ [Suspect]
     Indication: RHEUMATOID ARTHRITIS
     Dosage: 5 MG, 2X/DAY
     Route: 048
     Dates: start: 20130812, end: 20130904
  2. XELJANZ [Suspect]
     Dosage: UNK
     Dates: end: 20130904
  3. RANITIDINE [Concomitant]
     Dosage: 150 MG, UNK
  4. NAPROXEN SODIUM [Concomitant]
     Dosage: 220 MG, UNK

REACTIONS (4)
  - Insomnia [Recovered/Resolved]
  - Palpitations [Recovered/Resolved]
  - Hyperhidrosis [Recovered/Resolved]
  - Nausea [Recovered/Resolved]
